FAERS Safety Report 12213076 (Version 2)
Quarter: 2016Q3

REPORT INFORMATION
  Report Type: Spontaneous
  Country: US (occurrence: US)
  Receive Date: 20160328
  Receipt Date: 20160704
  Transmission Date: 20161109
  Serious: No
  Sender: FDA-Public Use
  Company Number: US-ASTRAZENECA-2016SE23024

PATIENT
  Age: 22650 Day
  Sex: Female
  Weight: 70.3 kg

DRUGS (18)
  1. VESSICARE [Concomitant]
  2. COLACE [Concomitant]
     Active Substance: DOCUSATE SODIUM
  3. GLUCOCEMINE [Concomitant]
     Route: 048
  4. VITAMIN D3 [Concomitant]
     Active Substance: CHOLECALCIFEROL
  5. CONDROITIN [Concomitant]
  6. MULTIVITAMIN [Concomitant]
     Active Substance: VITAMINS
     Dosage: DAILY
  7. LORAZAPAM [Concomitant]
     Active Substance: LORAZEPAM
     Dosage: 0.5MG AS REQUIRED
     Route: 048
  8. NORCO [Concomitant]
     Active Substance: ACETAMINOPHEN\HYDROCODONE BITARTRATE
     Indication: BACK PAIN
  9. NORCO [Concomitant]
     Active Substance: ACETAMINOPHEN\HYDROCODONE BITARTRATE
     Indication: FIBROMYALGIA
  10. GEODON [Concomitant]
     Active Substance: ZIPRASIDONE HYDROCHLORIDE\ZIPRASIDONE MESYLATE
     Indication: MENTAL DISORDER
  11. PROTONIX [Concomitant]
     Active Substance: PANTOPRAZOLE SODIUM
  12. SENOKOT [Concomitant]
     Active Substance: SENNOSIDES
     Dosage: 8.6MG AS REQUIRED
  13. NORCO [Concomitant]
     Active Substance: ACETAMINOPHEN\HYDROCODONE BITARTRATE
     Indication: PAIN
  14. TRAZODONE [Concomitant]
     Active Substance: TRAZODONE HYDROCHLORIDE
     Indication: MENTAL DISORDER
  15. PROBIOTIC [Concomitant]
     Active Substance: PROBIOTICS NOS
     Dosage: DAILY
  16. FORTEO [Concomitant]
     Active Substance: TERIPARATIDE
     Route: 058
  17. MOVANTIK [Suspect]
     Active Substance: NALOXEGOL OXALATE
     Indication: CONSTIPATION
     Route: 048
     Dates: start: 20160223
  18. LAMICTAL [Concomitant]
     Active Substance: LAMOTRIGINE

REACTIONS (3)
  - Intentional product misuse [Unknown]
  - Drug ineffective [Not Recovered/Not Resolved]
  - Flatulence [Unknown]

NARRATIVE: CASE EVENT DATE: 20160225
